FAERS Safety Report 6089619-2 (Version None)
Quarter: 2009Q1

REPORT INFORMATION
  Report Type: 
  Country: None (occurrence: None)
  Receive Date: 20090219
  Receipt Date: 20090219
  Transmission Date: 20090719
  Serious: Yes (Hospitalization)
  Sender: FDA-Public Use
  Company Number: None

PATIENT
  Sex: Female
  Weight: 109.3 kg

DRUGS (2)
  1. TAXOL [Suspect]
     Dosage: 2040 MG
     Dates: end: 20090109
  2. HERCEPTIN [Suspect]
     Dosage: 2795 MG
     Dates: end: 20090109

REACTIONS (7)
  - DYSPNOEA [None]
  - HYPOTENSION [None]
  - HYPOXIA [None]
  - LYMPHOPENIA [None]
  - PNEUMOCYSTIS JIROVECI PNEUMONIA [None]
  - PNEUMONITIS [None]
  - SINUSITIS [None]
